FAERS Safety Report 14152123 (Version 2)
Quarter: 2018Q1

REPORT INFORMATION
  Report Type: Spontaneous
  Country: US (occurrence: US)
  Receive Date: 20171102
  Receipt Date: 20180130
  Transmission Date: 20180508
  Serious: No
  Sender: FDA-Public Use
  Company Number: US-LUNDBECK-DKLU2039026

PATIENT
  Sex: Female

DRUGS (3)
  1. NORTHERA [Suspect]
     Active Substance: DROXIDOPA
     Route: 048
     Dates: end: 20171028
  2. NORTHERA [Suspect]
     Active Substance: DROXIDOPA
     Indication: PRODUCT USED FOR UNKNOWN INDICATION
     Dosage: TITRATION SCHEDULE C (COMPLETE)
     Route: 048
     Dates: start: 20171009
  3. NORTHERA [Suspect]
     Active Substance: DROXIDOPA
     Route: 048
     Dates: start: 20171029

REACTIONS (5)
  - Fatigue [Recovering/Resolving]
  - Dizziness postural [Recovering/Resolving]
  - Feeling abnormal [Unknown]
  - Presyncope [Recovering/Resolving]
  - Hypotension [Recovering/Resolving]
